FAERS Safety Report 7990593-X (Version None)
Quarter: 2011Q4

REPORT INFORMATION
  Report Type: 
  Country: None (occurrence: None)
  Receive Date: 20111219
  Receipt Date: 20111006
  Transmission Date: 20120403
  Serious: No
  Sender: FDA-Public Use
  Company Number: US-ASTRAZENECA-2011SE52231

PATIENT
  Age: 52 Year
  Sex: Female

DRUGS (2)
  1. SIMVASTATIN [Suspect]
     Route: 065
  2. CRESTOR [Suspect]
     Route: 048

REACTIONS (5)
  - DIABETES MELLITUS [None]
  - MYALGIA [None]
  - CARPAL TUNNEL SYNDROME [None]
  - HYPOAESTHESIA [None]
  - NEUROPATHY PERIPHERAL [None]
